FAERS Safety Report 4536548-9 (Version None)
Quarter: 2004Q4

REPORT INFORMATION
  Report Type: 
  Country: None (occurrence: None)
  Receive Date: 20041220
  Receipt Date: 20041207
  Transmission Date: 20050328
  Serious: Yes (Other)
  Sender: FDA-Public Use
  Company Number: 2004110631

PATIENT
  Age: 67 Year
  Sex: Female

DRUGS (9)
  1. BEXTRA [Suspect]
     Indication: ARTHRITIS
     Dosage: (20 MG), ORAL
     Route: 048
     Dates: start: 20041129, end: 20041130
  2. ATORVASTATIN(ATORVASTATIN) [Concomitant]
  3. LERCANIDIPINE (LERCANDIPINE) [Concomitant]
  4. CANDESARTAN (CANDESARTAN) [Concomitant]
  5. LANSOPRAZOLE [Concomitant]
  6. METOCLOPRAMIDE [Concomitant]
  7. DICLOFENAC (DICLOFENAC) [Concomitant]
  8. BECLOMETHASONE DIPROPIONATE [Concomitant]
  9. SALBUTAMOL SULFATE (SALBUTAMOL SULFATE) [Concomitant]

REACTIONS (6)
  - CHEST DISCOMFORT [None]
  - DYSPHAGIA [None]
  - DYSPNOEA [None]
  - FLUSHING [None]
  - SWELLING [None]
  - THROAT TIGHTNESS [None]
